FAERS Safety Report 11924946 (Version 2)
Quarter: 2016Q1

REPORT INFORMATION
  Report Type: Spontaneous
  Country: DE (occurrence: DE)
  Receive Date: 20160118
  Receipt Date: 20160215
  Transmission Date: 20160526
  Serious: Yes (Other)
  Sender: FDA-Public Use
  Company Number: DE-BAYER-2016-007850

PATIENT
  Sex: Female

DRUGS (2)
  1. MIRENA [Suspect]
     Active Substance: LEVONORGESTREL
     Dosage: 20 MCG/24HR, CONT
     Route: 015
     Dates: start: 200506, end: 201405
  2. MINISISTON [Suspect]
     Active Substance: ETHINYL ESTRADIOL\LEVONORGESTREL
     Dosage: 1 DF, QD
     Route: 048
     Dates: start: 201601

REACTIONS (4)
  - Epilepsy [Not Recovered/Not Resolved]
  - Uterine leiomyoma [None]
  - Haemangioma [Not Recovered/Not Resolved]
  - Drug interaction [None]
